FAERS Safety Report 15894211 (Version 1)
Quarter: 2019Q1

REPORT INFORMATION
  Report Type: Spontaneous
  Country: US (occurrence: US)
  Receive Date: 20190131
  Receipt Date: 20190131
  Transmission Date: 20190417
  Serious: Yes (Life-Threatening, Hospitalization, Disabling, Other)
  Sender: FDA-Public Use
  Company Number: None

PATIENT
  Age: 52 Year
  Sex: Female
  Weight: 67.5 kg

DRUGS (1)
  1. CIPROFLOXACIN. [Suspect]
     Active Substance: CIPROFLOXACIN
     Indication: ANAL ABSCESS
     Dosage: ?          QUANTITY:1 TABLET(S);?
     Route: 048
     Dates: start: 20140523, end: 20140530

REACTIONS (24)
  - Tendonitis [None]
  - Memory impairment [None]
  - Polyneuropathy [None]
  - Neuropathy peripheral [None]
  - Seizure [None]
  - Depression [None]
  - Dementia [None]
  - Depersonalisation/derealisation disorder [None]
  - Raynaud^s phenomenon [None]
  - Tendon rupture [None]
  - Muscular weakness [None]
  - Autonomic nervous system imbalance [None]
  - Anxiety [None]
  - Coeliac disease [None]
  - Migraine [None]
  - Muscle rupture [None]
  - Shock [None]
  - Autoimmune thyroiditis [None]
  - Cardiac arrest [None]
  - Arthralgia [None]
  - Insomnia [None]
  - Blindness [None]
  - Tremor [None]
  - Intervertebral disc degeneration [None]

NARRATIVE: CASE EVENT DATE: 20140530
